FAERS Safety Report 7548937-9 (Version None)
Quarter: 2011Q2

REPORT INFORMATION
  Report Type: 
  Country: None (occurrence: None)
  Receive Date: 20110615
  Receipt Date: 20110523
  Transmission Date: 20111010
  Serious: Yes (Hospitalization, Other)
  Sender: FDA-Public Use
  Company Number: US-BAYER-2010-004349

PATIENT
  Age: 28 Year
  Sex: Female
  Weight: 65.76 kg

DRUGS (11)
  1. TORADOL [Concomitant]
     Dosage: 10 MG, UNK
     Route: 048
  2. ATENOLOL [Concomitant]
  3. MIRALAX [Concomitant]
  4. LIDODERM [Concomitant]
  5. YAZ [Suspect]
     Dosage: UNK
     Route: 048
     Dates: start: 20060101, end: 20100101
  6. KLONOPIN [Concomitant]
  7. OXYCODONE HCL [Concomitant]
  8. VITAMIN D [Concomitant]
  9. METHADONE HCL [Concomitant]
     Indication: COMPLEX REGIONAL PAIN SYNDROME
     Dosage: 10 MG, UNK
     Route: 048
     Dates: start: 20100101
  10. SYNTHROID [Concomitant]
  11. REGLAN [Concomitant]

REACTIONS (4)
  - CHOLELITHIASIS [None]
  - GALLBLADDER NON-FUNCTIONING [None]
  - CHOLECYSTITIS ACUTE [None]
  - PAIN [None]
